FAERS Safety Report 7543839-6 (Version None)
Quarter: 2011Q2

REPORT INFORMATION
  Report Type: 
  Country: None (occurrence: None)
  Receive Date: 20110613
  Receipt Date: 20110607
  Transmission Date: 20111010
  Serious: Yes (Disabling, Other)
  Sender: FDA-Public Use
  Company Number: US-PFIZER INC-2011123717

PATIENT
  Sex: Female
  Weight: 62.59 kg

DRUGS (5)
  1. LIPITOR [Concomitant]
     Indication: BLOOD CHOLESTEROL INCREASED
     Dosage: 20 MG, DAILY
     Route: 048
  2. LISINOPRIL [Concomitant]
     Indication: HYPERTENSION
     Dosage: 10 MG, DAILY
     Route: 048
  3. HYDROCHLOROTHIAZIDE [Concomitant]
     Indication: HYPERTENSION
     Dosage: 25 MG DAILY
     Route: 048
  4. MOBIC [Concomitant]
     Indication: PAIN
     Dosage: 15 MG, DAILY
     Route: 048
  5. LYRICA [Suspect]
     Indication: FIBROMYALGIA
     Dosage: 50 MG, DAILY
     Route: 048
     Dates: start: 20110531, end: 20110603

REACTIONS (9)
  - VIOLENCE-RELATED SYMPTOM [None]
  - RASH MACULAR [None]
  - DYSPNOEA [None]
  - HEADACHE [None]
  - FULL BLOOD COUNT INCREASED [None]
  - POLLAKIURIA [None]
  - INSOMNIA [None]
  - PYREXIA [None]
  - SPEECH DISORDER [None]
